FAERS Safety Report 5056379-3 (Version None)
Quarter: 2006Q3

REPORT INFORMATION
  Report Type: 
  Country: None (occurrence: None)
  Receive Date: 20060720
  Receipt Date: 20060224
  Transmission Date: 20061208
  Serious: Yes (Disabling)
  Sender: FDA-Public Use
  Company Number: US-ROCHE-438218

PATIENT
  Age: 28 Year
  Sex: Male
  Weight: 81.6 kg

DRUGS (2)
  1. ACCUTANE [Suspect]
     Indication: ACNE
     Route: 048
     Dates: start: 19960606, end: 19960812
  2. ACCUTANE [Suspect]
     Dosage: STRENGTH REPORTED BETWEEN 06 JUL 1996 TO 12 AUG 1996 AS 40 MG, AND BETWEEN 23 MAY 1997 TO 25 JUN 19+
     Route: 048
     Dates: start: 19970523, end: 19970625

REACTIONS (6)
  - EMOTIONAL DISORDER [None]
  - GASTROINTESTINAL DISORDER [None]
  - INFLAMMATORY BOWEL DISEASE [None]
  - INJURY [None]
  - INTERNAL INJURY [None]
  - IRRITABLE BOWEL SYNDROME [None]
